FAERS Safety Report 15715233 (Version 1)
Quarter: 2018Q4

REPORT INFORMATION
  Report Type: Spontaneous
  Country: US (occurrence: US)
  Receive Date: 20181212
  Receipt Date: 20181212
  Transmission Date: 20190205
  Serious: Yes (Other)
  Sender: FDA-Public Use
  Company Number: US-ENDO PHARMACEUTICALS INC-2018-019741

PATIENT
  Age: 73 Year
  Sex: Male

DRUGS (6)
  1. TESTIM [Suspect]
     Active Substance: TESTOSTERONE
     Dosage: UNK UNKNOWN, UNKNOWN
     Route: 062
     Dates: start: 20090420, end: 20100407
  2. ANDROGEL [Suspect]
     Active Substance: TESTOSTERONE
     Dosage: ANDROGEL 1%, UNKNOWN, UNKNOWN
     Route: 065
     Dates: start: 20100330, end: 20120401
  3. ANDROGEL [Suspect]
     Active Substance: TESTOSTERONE
     Dosage: ANDROGEL 1.62%, UNKNOWN, UNKNOWN
     Route: 065
     Dates: start: 20130222, end: 20141202
  4. ANDROGEL [Suspect]
     Active Substance: TESTOSTERONE
     Indication: ANDROGEN REPLACEMENT THERAPY
     Dosage: ANDROGEL 1%, UNKNOWN, UNKNOWN
     Route: 065
     Dates: start: 20090331, end: 20090419
  5. TESTOSTERONE CYPIONATE. [Suspect]
     Active Substance: TESTOSTERONE CYPIONATE
     Indication: ANDROGEN REPLACEMENT THERAPY
     Dosage: UNK UNKNOWN, UNKNOWN
     Route: 065
     Dates: start: 20060719, end: 200706
  6. TESTIM [Suspect]
     Active Substance: TESTOSTERONE
     Indication: ANDROGEN REPLACEMENT THERAPY
     Dosage: UNK UNKNOWN, UNKNOWN
     Route: 062
     Dates: start: 20081126, end: 20090122

REACTIONS (1)
  - Pulmonary embolism [Unknown]

NARRATIVE: CASE EVENT DATE: 20141103
